FAERS Safety Report 9115408 (Version 4)
Quarter: 2014Q1

REPORT INFORMATION
  Report Type: Spontaneous
  Country: US (occurrence: US)
  Receive Date: 20130225
  Receipt Date: 20140115
  Transmission Date: 20141002
  Serious: Yes (Other)
  Sender: FDA-Public Use
  Company Number: US-PFIZER INC-2013065738

PATIENT
  Age: 53 Year
  Sex: Female
  Weight: 84.35 kg

DRUGS (2)
  1. DILANTIN [Suspect]
     Indication: CONVULSION
     Dosage: 200 MG IN MORNING AND 230 MG AT NIGHT
     Route: 048
  2. DEPAKOTE [Suspect]
     Indication: CONVULSION
     Dosage: UNK

REACTIONS (10)
  - Reynold^s syndrome [Unknown]
  - Pneumonia [Unknown]
  - Coronary artery disease [Unknown]
  - Thrombosis [Unknown]
  - Cardiac disorder [Unknown]
  - Osteopenia [Unknown]
  - Lymphoedema [Unknown]
  - Fibromyalgia [Unknown]
  - Tremor [Unknown]
  - Phlebitis [Unknown]
